FAERS Safety Report 8116585-8 (Version None)
Quarter: 2012Q1

REPORT INFORMATION
  Report Type: 
  Country: None (occurrence: None)
  Receive Date: 20120206
  Receipt Date: 20120126
  Transmission Date: 20120608
  Serious: Yes (Death, Life-Threatening, Hospitalization)
  Sender: FDA-Public Use
  Company Number: FR-PFIZER INC-2011305103

PATIENT
  Age: 65 Year
  Sex: Male

DRUGS (13)
  1. LOSARTAN POTASSIUM AND HYDROCHLOROTHIAZIDE [Suspect]
     Indication: HYPERTENSION
     Dosage: 100 MG/25 MG, FILM-COATED TABLET
     Route: 048
     Dates: start: 20110201
  2. HYZAAR [Suspect]
     Indication: HYPERTENSION
     Dosage: UNK
     Route: 048
     Dates: start: 20100901, end: 20110201
  3. SPASFON-LYOC [Concomitant]
     Indication: PAIN
     Dosage: AS NEEDED
  4. PARACETAMOL [Concomitant]
     Indication: PAIN
     Dosage: UNK
  5. SYMBICORT [Suspect]
     Indication: CHRONIC OBSTRUCTIVE PULMONARY DISEASE
     Dosage: UNK
     Route: 055
     Dates: start: 20100901
  6. LOVENOX [Suspect]
     Dosage: 4000 IU ANTI-XA/4ML
     Route: 058
     Dates: start: 20111107, end: 20111125
  7. POTASSIUM CHLORIDE [Concomitant]
  8. MOVIPREP [Concomitant]
     Indication: CONSTIPATION
     Dosage: AS NEEDED
  9. SUNITINIB MALATE [Suspect]
     Indication: METASTATIC RENAL CELL CARCINOMA
     Dosage: 50 MG, CYCLIC, ONCE DAILY
     Route: 048
     Dates: start: 20101020, end: 20111213
  10. HYPERIUM [Suspect]
     Indication: HYPERTENSION
     Dosage: 1 MG, TABLET
     Dates: start: 20100901
  11. LANSOPRAZOLE [Suspect]
     Dosage: UNK
     Route: 048
     Dates: start: 20100901
  12. AMLODIPINE BESYLATE [Suspect]
     Dosage: 5 MG, CAPSULE
     Route: 048
     Dates: start: 20101201
  13. TRAMADOL HCL [Concomitant]
     Indication: PAIN
     Dosage: AS NEEDED

REACTIONS (1)
  - AORTIC DISSECTION [None]
